FAERS Safety Report 18369103 (Version 1)
Quarter: 2020Q4

REPORT INFORMATION
  Report Type: Spontaneous
  Country: US (occurrence: US)
  Receive Date: 20201011
  Receipt Date: 20201011
  Transmission Date: 20210114
  Serious: No
  Sender: FDA-Public Use
  Company Number: US-CELLTRION INC.-2019US022042

PATIENT

DRUGS (3)
  1. INFLECTRA [Suspect]
     Active Substance: INFLIXIMAB-DYYB
     Indication: ABDOMINAL PAIN
     Dosage: UNK (INFUSION STARTS AT 10 ML FOR A CERTAIN AMOUNT OF TIME AND THEN IT DOUBLES THE RATE EVERY 15 MIN
     Route: 042
     Dates: start: 20190620
  2. INFLECTRA [Suspect]
     Active Substance: INFLIXIMAB-DYYB
     Indication: COLITIS
     Dosage: 500 MG (INFUSION STARTS AT 10 ML FOR A CERTAIN AMOUNT OF TIME AND THEN IT DOUBLES THE RATE EVERY 15
     Route: 042
     Dates: start: 20190606
  3. INFLECTRA [Suspect]
     Active Substance: INFLIXIMAB-DYYB
     Indication: COLITIS ULCERATIVE

REACTIONS (1)
  - Underdose [Unknown]
